FAERS Safety Report 9388048 (Version 2)
Quarter: 2013Q3

REPORT INFORMATION
  Report Type: Spontaneous
  Country: US (occurrence: None)
  Receive Date: 20130703
  Receipt Date: 20130913
  Transmission Date: 20140515
  Serious: Yes (Other)
  Sender: FDA-Public Use
  Company Number: CA-ALSI-201300172

PATIENT
  Age: 74 Year
  Sex: Male

DRUGS (1)
  1. OXYGEN [Suspect]
     Indication: CHRONIC OBSTRUCTIVE PULMONARY DISEASE
     Dosage: 2 L ONCE A MINUTE
     Dates: start: 20130615, end: 20130620

REACTIONS (4)
  - Intentional drug misuse [None]
  - Accident [None]
  - Respiratory fume inhalation disorder [None]
  - Sputum discoloured [None]
